FAERS Safety Report 18331102 (Version 1)
Quarter: 2020Q3

REPORT INFORMATION
  Report Type: Spontaneous
  Country: ES (occurrence: ES)
  Receive Date: 20200930
  Receipt Date: 20200930
  Transmission Date: 20201103
  Serious: Yes (Life-Threatening)
  Sender: FDA-Public Use
  Company Number: ES-ASTRAZENECA-2020SF24075

PATIENT
  Age: 84 Year
  Sex: Male

DRUGS (8)
  1. FORXIGA [Suspect]
     Active Substance: DAPAGLIFLOZIN
     Indication: DIABETES MELLITUS
     Route: 048
     Dates: start: 20191129, end: 20200708
  2. OMEPRAZOL [Concomitant]
     Active Substance: OMEPRAZOLE
     Route: 065
  3. ESPIRONOLACTONA [Concomitant]
     Active Substance: SPIRONOLACTONE
     Route: 065
  4. BISOPROLOL [Concomitant]
     Active Substance: BISOPROLOL
     Route: 065
  5. METFORMIN [Concomitant]
     Active Substance: METFORMIN HYDROCHLORIDE
     Route: 065
  6. SINTROM [Concomitant]
     Active Substance: ACENOCOUMAROL
     Route: 065
  7. SACUBITRIL+VALSARTAN [Concomitant]
     Route: 065
  8. ATORVASTATIN [Concomitant]
     Active Substance: ATORVASTATIN
     Route: 065

REACTIONS (2)
  - Septic shock [Recovering/Resolving]
  - Fournier^s gangrene [Recovering/Resolving]

NARRATIVE: CASE EVENT DATE: 20200709
